FAERS Safety Report 15144773 (Version 2)
Quarter: 2018Q4

REPORT INFORMATION
  Report Type: Spontaneous
  Country: US (occurrence: US)
  Receive Date: 20180713
  Receipt Date: 20181112
  Transmission Date: 20190204
  Serious: Yes (Other)
  Sender: FDA-Public Use
  Company Number: US-BAUSCH-BL-2018-018984

PATIENT
  Age: 39 Year
  Sex: Male
  Weight: 143.01 kg

DRUGS (1)
  1. SILIQ [Suspect]
     Active Substance: BRODALUMAB
     Indication: PSORIASIS
     Route: 058
     Dates: start: 201805, end: 2018

REACTIONS (4)
  - Drug ineffective [Recovered/Resolved]
  - Depressed mood [Unknown]
  - Suicidal ideation [Unknown]
  - Frustration tolerance decreased [Unknown]

NARRATIVE: CASE EVENT DATE: 2018
